FAERS Safety Report 18608897 (Version 17)
Quarter: 2024Q4

REPORT INFORMATION
  Report Type: Report from Study
  Country: US (occurrence: US)
  Receive Date: 20201213
  Receipt Date: 20241004
  Transmission Date: 20250114
  Serious: Yes (Other)
  Sender: RANBAXY
  Company Number: US-SUN PHARMACEUTICAL INDUSTRIES LTD-2020R1-270743

PATIENT
  Age: 57 Year
  Sex: Female

DRUGS (3)
  1. BOSENTAN [Suspect]
     Active Substance: BOSENTAN
     Indication: Pulmonary arterial hypertension
     Dosage: 125 MILLIGRAM, BID (ONE IN THE MORNING ONE AT NIGHT)
     Route: 048
     Dates: start: 202008
  2. BOSENTAN [Suspect]
     Active Substance: BOSENTAN
     Dosage: 125 MILLIGRAM, BID (ONE IN THE MORNING ONE AT NIGHT)
     Route: 048
     Dates: start: 202001
  3. BOSENTAN [Suspect]
     Active Substance: BOSENTAN
     Dosage: 125 MILLIGRAM, BID (ONE IN THE MORNING ONE AT NIGHT)
     Route: 048
     Dates: start: 20200130

REACTIONS (20)
  - Coronavirus infection [Unknown]
  - Pneumonia [Unknown]
  - Disease recurrence [Unknown]
  - Hepatitis B [Unknown]
  - Diverticulitis [Unknown]
  - Hepatomegaly [Unknown]
  - Abdominal pain upper [Unknown]
  - Nausea [Unknown]
  - Fatigue [Unknown]
  - Myalgia [Unknown]
  - Arthralgia [Unknown]
  - Low density lipoprotein increased [Unknown]
  - Vertigo [Unknown]
  - Dizziness [Unknown]
  - Hyperhidrosis [Unknown]
  - Hepatitis A [Unknown]
  - Infection [Unknown]
  - Feeling abnormal [Unknown]
  - Hepatic steatosis [Unknown]
  - Pain [Unknown]

NARRATIVE: CASE EVENT DATE: 20201213
